FAERS Safety Report 5628519-6 (Version None)
Quarter: 2008Q1

REPORT INFORMATION
  Report Type: 
  Country: None (occurrence: None)
  Receive Date: 20080215
  Receipt Date: 20080204
  Transmission Date: 20080703
  Serious: Yes (Death)
  Sender: FDA-Public Use
  Company Number: ES-GENENTECH-255878

PATIENT

DRUGS (3)
  1. MABTHERA [Suspect]
     Indication: LYMPHOMA
     Dosage: 375 MG/M2, UNK
  2. GEMCITABINE [Suspect]
     Indication: LYMPHOMA
     Dosage: 1000 MG/M2, UNK
  3. OXALIPLATIN [Suspect]
     Indication: LYMPHOMA
     Dosage: 100 MG/M2, UNK

REACTIONS (1)
  - INFECTION [None]
